FAERS Safety Report 21749812 (Version 1)
Quarter: 2022Q4

REPORT INFORMATION
  Report Type: Spontaneous
  Country: GB (occurrence: GB)
  Receive Date: 20221219
  Receipt Date: 20221219
  Transmission Date: 20230113
  Serious: Yes (Disabling)
  Sender: FDA-Public Use
  Company Number: None

PATIENT
  Age: 51 Year
  Sex: Male
  Weight: 97 kg

DRUGS (7)
  1. FAMOTIDINE [Suspect]
     Active Substance: FAMOTIDINE
     Indication: Product used for unknown indication
     Dosage: 20 MILLIGRAM, BID
     Route: 065
     Dates: start: 20220822
  2. AMOXICILLIN [Concomitant]
     Active Substance: AMOXICILLIN
     Indication: Productive cough
     Dosage: 500 MILLIGRAM, TID
     Route: 065
     Dates: start: 20221013
  3. POTASSIUM BICARBONATE\SODIUM ALGINATE [Concomitant]
     Active Substance: POTASSIUM BICARBONATE\SODIUM ALGINATE
     Dosage: 500 MILLILITER (1 OR 2 5ML SPOONFULS TO BE TAKEN AFTER MEALS AND AT BEDTIME)
     Route: 048
     Dates: start: 20221104
  4. LEVETIRACETAM [Concomitant]
     Active Substance: LEVETIRACETAM
     Dosage: 1 GRAM (IN MANE)
     Route: 065
     Dates: start: 20220809, end: 20220909
  5. NYSTATIN [Concomitant]
     Active Substance: NYSTATIN
     Dosage: 30 MILLILITER, Q4D (1100,000 UNITS/ML, FOR 7 DAYS, AND CONTINUED FOR 48 HOURS AFTER LESIONS)
     Route: 048
     Dates: start: 20220818, end: 20220930
  6. ACETAMINOPHEN [Concomitant]
     Active Substance: ACETAMINOPHEN
     Dosage: 1000 MILLIGRAM EVERY 4-6 HOURS UP TO FOUR TIMES A DAY
     Route: 065
     Dates: start: 20221012
  7. SENNA [Concomitant]
     Active Substance: SENNA LEAF\SENNOSIDES\SENNOSIDES A AND B
     Indication: Constipation
     Dosage: 15 MILLIGRAM, QD (AT NIGHT, AS REQUIRED)
     Route: 065
     Dates: start: 20221025

REACTIONS (2)
  - Mental disorder [Recovering/Resolving]
  - Agitation [Unknown]

NARRATIVE: CASE EVENT DATE: 20221024
